FAERS Safety Report 11640679 (Version 3)
Quarter: 2015Q4

REPORT INFORMATION
  Report Type: Spontaneous
  Country: US (occurrence: US)
  Receive Date: 20151019
  Receipt Date: 20151221
  Transmission Date: 20160304
  Serious: Yes (Other)
  Sender: FDA-Public Use
  Company Number: US-PFIZER INC-2015349617

PATIENT
  Age: 76 Year
  Sex: Female

DRUGS (2)
  1. ESTRING [Suspect]
     Active Substance: ESTRADIOL
     Indication: HORMONE REPLACEMENT THERAPY
     Dosage: 2 MG, PLACE VAGINALLY EVERY 3-4 MONTHS
     Route: 067
  2. ESTRING [Suspect]
     Active Substance: ESTRADIOL
     Indication: UROGENITAL ATROPHY
     Dosage: UNK
     Dates: start: 2005, end: 201510

REACTIONS (5)
  - Back pain [Not Recovered/Not Resolved]
  - Lymphadenopathy [Unknown]
  - Vaginal haemorrhage [Recovered/Resolved]
  - Vaginal erosion [Unknown]
  - Neoplasm malignant [Not Recovered/Not Resolved]

NARRATIVE: CASE EVENT DATE: 201510
